FAERS Safety Report 6880284-0 (Version None)
Quarter: 2010Q3

REPORT INFORMATION
  Report Type: 
  Country: None (occurrence: None)
  Receive Date: 20100728
  Receipt Date: 20100614
  Transmission Date: 20110219
  Serious: No
  Sender: FDA-Public Use
  Company Number: US-BRISTOL-MYERS SQUIBB COMPANY-15149479

PATIENT
  Sex: Female

DRUGS (1)
  1. GLUCOVANCE [Suspect]
     Dosage: 1 DF = 2.5/500MG

REACTIONS (1)
  - BLOOD GLUCOSE INCREASED [None]
